FAERS Safety Report 8511235-0 (Version None)
Quarter: 2012Q3

REPORT INFORMATION
  Report Type: 
  Country: None (occurrence: None)
  Receive Date: 20120716
  Receipt Date: 20120706
  Transmission Date: 20120928
  Serious: Yes (Hospitalization)
  Sender: FDA-Public Use
  Company Number: TR-SANOFI-AVENTIS-2012SA046519

PATIENT
  Age: 12 Year
  Sex: Male

DRUGS (1)
  1. ENOXAPARIN SODIUM [Suspect]
     Indication: THROMBOSIS PROPHYLAXIS
     Route: 058

REACTIONS (5)
  - SUBDURAL HAEMATOMA [None]
  - NAUSEA [None]
  - HEADACHE [None]
  - VOMITING [None]
  - VITH NERVE PARALYSIS [None]
